FAERS Safety Report 8535520-1 (Version None)
Quarter: 2012Q3

REPORT INFORMATION
  Report Type: 
  Country: None (occurrence: None)
  Receive Date: 20120725
  Receipt Date: 20120716
  Transmission Date: 20120928
  Serious: Yes (Other)
  Sender: FDA-Public Use
  Company Number: US-CELGENEUS-163-21880-12021403

PATIENT
  Sex: Female
  Weight: 72.64 kg

DRUGS (15)
  1. LOSARTAN POTASSIUM [Concomitant]
     Route: 065
  2. ASPIRIN [Concomitant]
     Route: 065
  3. DETROL LA [Concomitant]
     Route: 065
  4. LOVAZA [Concomitant]
     Route: 065
  5. RESTASIS [Concomitant]
     Route: 065
  6. REVLIMID [Suspect]
     Indication: MULTIPLE MYELOMA
     Dosage: 25 MILLIGRAM
     Route: 048
     Dates: start: 20120102
  7. CARVEDILOL [Concomitant]
     Route: 048
  8. CRESTOR [Concomitant]
     Route: 065
  9. SPIRONOLACTONE [Concomitant]
     Route: 048
  10. MULTI-VITAMINS [Concomitant]
     Route: 065
  11. LASIX [Concomitant]
     Route: 065
  12. LEVOTHYROXINE SODIUM [Concomitant]
     Route: 065
  13. CALCIUM +D [Concomitant]
     Route: 065
  14. DEXAMETHASONE [Concomitant]
     Route: 065
  15. POTASSIUM CHLORIDE [Concomitant]
     Route: 065

REACTIONS (4)
  - CONSTIPATION [None]
  - EJECTION FRACTION DECREASED [None]
  - CARDIAC DISORDER [None]
  - BLOOD PRESSURE ABNORMAL [None]
